FAERS Safety Report 4263037-1 (Version None)
Quarter: 2004Q1

REPORT INFORMATION
  Report Type: 
  Country: None (occurrence: None)
  Receive Date: 20040102
  Receipt Date: 20040102
  Transmission Date: 20041129
  Serious: No
  Sender: FDA-Public Use
  Company Number: None

PATIENT
  Age: 24 Month
  Sex: Male

DRUGS (3)
  1. CLOZAPINE [Suspect]
     Indication: SCHIZOAFFECTIVE DISORDER
     Dosage: 300 MG PO
     Route: 048
     Dates: start: 20031006, end: 20031104
  2. KEFLEX [Concomitant]
  3. MULTI-VITAMIN [Concomitant]

REACTIONS (2)
  - GRAND MAL CONVULSION [None]
  - MEDICATION ERROR [None]
